FAERS Safety Report 9456652 (Version 4)
Quarter: 2013Q4

REPORT INFORMATION
  Report Type: Spontaneous
  Country: DE (occurrence: DE)
  Receive Date: 20130813
  Receipt Date: 20131114
  Transmission Date: 20140711
  Serious: Yes (Other)
  Sender: FDA-Public Use
  Company Number: DE-B.I. PHARMACEUTICALS,INC./RIDGEFIELD-2013-BI-24212DE

PATIENT
  Age: 73 Year
  Sex: Male

DRUGS (5)
  1. MICARDIS [Suspect]
     Indication: HYPERTENSION
     Dates: start: 2005
  2. ASS 100 MG [Concomitant]
  3. METOPROLOL 47.5 [Concomitant]
  4. BELOCZOC MITE [Concomitant]
     Dates: start: 2006
  5. LERCANIDIPIN [Concomitant]
     Indication: HYPERTENSION
     Dates: start: 2013

REACTIONS (2)
  - Tachyarrhythmia [Unknown]
  - Atrial fibrillation [Unknown]
